FAERS Safety Report 5787165-4 (Version None)
Quarter: 2008Q2

REPORT INFORMATION
  Report Type: 
  Country: None (occurrence: None)
  Receive Date: 20080625
  Receipt Date: 20080411
  Transmission Date: 20081010
  Serious: No
  Sender: FDA-Public Use
  Company Number: US-BAUSCH-2008BL001668

PATIENT
  Sex: Male

DRUGS (2)
  1. ALAWAY [Suspect]
     Indication: OFF LABEL USE
     Route: 047
     Dates: start: 20080409, end: 20080410
  2. VITAMIN CAP [Concomitant]
     Indication: VITAMIN SUPPLEMENTATION

REACTIONS (3)
  - CONDITION AGGRAVATED [None]
  - DRUG INEFFECTIVE FOR UNAPPROVED INDICATION [None]
  - OCULAR HYPERAEMIA [None]
